FAERS Safety Report 8220338-X (Version None)
Quarter: 2012Q1

REPORT INFORMATION
  Report Type: 
  Country: None (occurrence: None)
  Receive Date: 20120320
  Receipt Date: 20120305
  Transmission Date: 20120608
  Serious: Yes (Hospitalization, Other)
  Sender: FDA-Public Use
  Company Number: US-PAR PHARMACEUTICAL, INC-2012SCPR004263

PATIENT

DRUGS (1)
  1. HYDROXYUREA [Suspect]
     Indication: ESSENTIAL THROMBOCYTHAEMIA
     Dosage: 500 MG, BID
     Route: 048
     Dates: start: 20120101, end: 20120227

REACTIONS (8)
  - NAUSEA [None]
  - PLATELET COUNT INCREASED [None]
  - FATIGUE [None]
  - DRUG INEFFECTIVE [None]
  - PULMONARY EMBOLISM [None]
  - HAEMATOCHEZIA [None]
  - HEADACHE [None]
  - PRODUCT QUALITY ISSUE [None]
